FAERS Safety Report 13962036 (Version 1)
Quarter: 2017Q3

REPORT INFORMATION
  Report Type: Spontaneous
  Country: US (occurrence: US)
  Receive Date: 20170912
  Receipt Date: 20170912
  Transmission Date: 20171128
  Serious: Yes (Hospitalization, Other)
  Sender: FDA-Public Use
  Company Number: US-ELI_LILLY_AND_COMPANY-US201709000366

PATIENT
  Sex: Male

DRUGS (1)
  1. HUMATROPE [Suspect]
     Active Substance: SOMATROPIN
     Indication: DIABETES MELLITUS MANAGEMENT
     Dosage: 1 MG, DAILY
     Route: 058

REACTIONS (6)
  - Blood glucose decreased [Unknown]
  - Cardiac failure congestive [Unknown]
  - Off label use [Unknown]
  - Acute respiratory distress syndrome [Unknown]
  - Malaise [Unknown]
  - Pneumonia [Unknown]
